FAERS Safety Report 10276707 (Version 1)
Quarter: 2014Q3

REPORT INFORMATION
  Report Type: Report from Study
  Country: US (occurrence: US)
  Receive Date: 20140703
  Receipt Date: 20140703
  Transmission Date: 20150326
  Serious: Yes (Hospitalization)
  Sender: FDA-Public Use
  Company Number: US-TEVA-491636USA

PATIENT
  Sex: Female

DRUGS (2)
  1. COPAXONE [Suspect]
     Active Substance: GLATIRAMER ACETATE
     Dates: start: 20140528
  2. COPAXONE [Suspect]
     Active Substance: GLATIRAMER ACETATE
     Indication: MULTIPLE SCLEROSIS
     Dates: start: 20020601, end: 20080301

REACTIONS (10)
  - Syncope [Unknown]
  - Vitamin D decreased [Unknown]
  - Immediate post-injection reaction [Unknown]
  - Dyspnoea [Unknown]
  - Feeling hot [Unknown]
  - Fall [Unknown]
  - Blood potassium decreased [Unknown]
  - Dizziness [Unknown]
  - Palpitations [Unknown]
  - Asthenia [Unknown]
